FAERS Safety Report 6961650-1 (Version None)
Quarter: 2010Q3

REPORT INFORMATION
  Report Type: 
  Country: None (occurrence: None)
  Receive Date: 20100901
  Receipt Date: 20100820
  Transmission Date: 20110219
  Serious: Yes (Death, Hospitalization)
  Sender: FDA-Public Use
  Company Number: GB-ELI_LILLY_AND_COMPANY-GB201007001937

PATIENT
  Sex: Male

DRUGS (11)
  1. PEMETREXED [Suspect]
     Indication: NON-SMALL CELL LUNG CANCER
     Dosage: 500 MG/M2, UNKNOWN
     Route: 042
     Dates: start: 20100419
  2. CISPLATIN [Suspect]
     Indication: NON-SMALL CELL LUNG CANCER
     Dosage: 75 MG/M2, UNKNOWN
     Route: 042
     Dates: start: 20100419
  3. ORAMORPH SR [Concomitant]
     Indication: ANALGESIC THERAPY
     Dosage: 5-10MG, 4-6 TIMES DAILY
     Route: 048
     Dates: start: 20100528
  4. ACETAMINOPHEN [Concomitant]
     Indication: ANALGESIC THERAPY
     Dosage: 1 G, 4/D
     Route: 048
  5. AMITRIPTYLINE HYDROCHLORIDE [Concomitant]
     Indication: ANALGESIC THERAPY
     Dosage: 10 MG, EACH EVENING
     Route: 048
  6. SENNA [Concomitant]
     Indication: CONSTIPATION
     Dosage: 2 D/F, DAILY (1/D)
     Route: 048
     Dates: start: 20100625
  7. ONDANSETRON [Concomitant]
     Indication: ANTIEMETIC SUPPORTIVE CARE
     Dosage: 4 MG, 3/D
     Route: 048
     Dates: start: 20100419
  8. MOTILIUM [Concomitant]
     Indication: ANTIEMETIC SUPPORTIVE CARE
     Dosage: 10 MG, AS NEEDED
     Route: 048
  9. TEMAZEPAM [Concomitant]
     Indication: INSOMNIA
     Dosage: 10 MG,  ONCE DAILY EACH EVENING
     Route: 048
  10. FOLIC ACID [Concomitant]
     Dosage: 400 UG, DAILY (1/D)
     Route: 048
     Dates: start: 20100329
  11. VITAMIN B-12 [Concomitant]
     Dosage: 1000 UG, EVERY 9 WEEKS
     Route: 030
     Dates: start: 20100329

REACTIONS (4)
  - CHEST PAIN [None]
  - DEATH [None]
  - FEBRILE NEUTROPENIA [None]
  - NAUSEA [None]
